FAERS Safety Report 6573403-7 (Version None)
Quarter: 2010Q1

REPORT INFORMATION
  Report Type: 
  Country: None (occurrence: None)
  Receive Date: 20100208
  Receipt Date: 20100129
  Transmission Date: 20100710
  Serious: Yes (Hospitalization, Other)
  Sender: FDA-Public Use
  Company Number: US-PFIZER INC-2010012491

PATIENT
  Age: 46 Year
  Sex: Male
  Weight: 107.4 kg

DRUGS (7)
  1. BLINDED *NO SUBJECT DRUG [Suspect]
     Indication: RENAL CELL CARCINOMA
     Dosage: UNK
     Route: 048
     Dates: start: 20090806, end: 20091219
  2. BLINDED *PLACEBO [Suspect]
     Indication: RENAL CELL CARCINOMA
     Dosage: UNK
     Route: 048
     Dates: start: 20090806, end: 20091219
  3. BLINDED *SORAFENIB [Suspect]
     Indication: RENAL CELL CARCINOMA
     Dosage: UNK
     Route: 048
     Dates: start: 20090806, end: 20091219
  4. BLINDED SUNITINIB MALATE [Suspect]
     Indication: RENAL CELL CARCINOMA
     Dosage: UNK
     Route: 048
     Dates: start: 20090806, end: 20091219
  5. DEXAMETHASONE [Concomitant]
  6. NEXIUM [Concomitant]
  7. VERAPAMIL [Concomitant]
     Dosage: 240 MG, 1X/DAY

REACTIONS (6)
  - DEAFNESS [None]
  - DEAFNESS UNILATERAL [None]
  - GASTRITIS EROSIVE [None]
  - MIGRAINE [None]
  - REFLUX GASTRITIS [None]
  - TINNITUS [None]
